FAERS Safety Report 25151610 (Version 2)
Quarter: 2025Q2

REPORT INFORMATION
  Report Type: Report from Study
  Country: JP (occurrence: JP)
  Receive Date: 20250402
  Receipt Date: 20250609
  Transmission Date: 20250717
  Serious: Yes (Death)
  Sender: BAUSCH AND LOMB
  Company Number: JP-BAUSCH-BL-2025-004260

PATIENT
  Age: 67 Year
  Sex: Male
  Weight: 52 kg

DRUGS (3)
  1. DEMSER [Suspect]
     Active Substance: METYROSINE
     Indication: Blood catecholamines increased
     Dosage: 250 MG, Q12H
     Route: 048
     Dates: start: 20241030, end: 20241112
  2. DEMSER [Suspect]
     Active Substance: METYROSINE
     Dosage: 250 MG, Q8H
     Route: 048
     Dates: start: 20241113, end: 20241201
  3. DEMSER [Suspect]
     Active Substance: METYROSINE
     Dosage: 250 MG, Q6H
     Route: 048
     Dates: start: 20241202, end: 20241227

REACTIONS (1)
  - Death [Fatal]

NARRATIVE: CASE EVENT DATE: 20241227
